FAERS Safety Report 6706998-0 (Version None)
Quarter: 2010Q2

REPORT INFORMATION
  Report Type: 
  Country: None (occurrence: None)
  Receive Date: 20100503
  Receipt Date: 20100429
  Transmission Date: 20101027
  Serious: Yes (Hospitalization)
  Sender: FDA-Public Use
  Company Number: GXKR2010DE04784

PATIENT
  Age: 76 Year
  Sex: Female

DRUGS (1)
  1. CLARITHROMYCIN HEXAL (NGX) [Suspect]
     Route: 048

REACTIONS (3)
  - GASTRIC HAEMORRHAGE [None]
  - HAEMARTHROSIS [None]
  - PROTHROMBIN TIME PROLONGED [None]
